FAERS Safety Report 24565971 (Version 1)
Quarter: 2024Q4

REPORT INFORMATION
  Report Type: Spontaneous
  Country: US (occurrence: None)
  Receive Date: 20241029
  Receipt Date: 20241029
  Transmission Date: 20250115
  Serious: Yes (Hospitalization)
  Sender: Public
  Company Number: None

PATIENT
  Age: 95 Year
  Sex: Male
  Weight: 71 kg

DRUGS (1)
  1. DULOXETINE HYDROCHLORIDE [Suspect]
     Active Substance: DULOXETINE HYDROCHLORIDE
     Indication: Pain
     Dosage: FREQUENCY : DAILY;?
     Route: 048
     Dates: start: 20240618, end: 20240713

REACTIONS (4)
  - Fall [None]
  - Hyponatraemia [None]
  - Inappropriate antidiuretic hormone secretion [None]
  - Hypovolaemia [None]

NARRATIVE: CASE EVENT DATE: 20240705
